FAERS Safety Report 16470624 (Version 1)
Quarter: 2019Q2

REPORT INFORMATION
  Report Type: Other
  Country: CA (occurrence: CA)
  Receive Date: 20190624
  Receipt Date: 20190624
  Transmission Date: 20190711
  Serious: Yes (Other)
  Sender: FDA-Public Use
  Company Number: CA-GE HEALTHCARE LIFE SCIENCES-2019CSU003253

PATIENT

DRUGS (4)
  1. PREDNISONE. [Concomitant]
     Active Substance: PREDNISONE
  2. OMNIPAQUE [Suspect]
     Active Substance: IOHEXOL
     Indication: BREAST CANCER
  3. OMNIPAQUE [Suspect]
     Active Substance: IOHEXOL
     Indication: COMPUTERISED TOMOGRAM THORAX
     Dosage: 70 ML, SINGLE
     Route: 040
  4. BENADRYL [Concomitant]
     Active Substance: DIPHENHYDRAMINE HYDROCHLORIDE

REACTIONS (8)
  - Vulvovaginal burning sensation [Unknown]
  - Seizure [Unknown]
  - Unresponsive to stimuli [Unknown]
  - Nausea [Unknown]
  - Dyspnoea [Unknown]
  - Discomfort [Unknown]
  - Burning sensation [Unknown]
  - Malaise [Unknown]
